FAERS Safety Report 13522637 (Version 2)
Quarter: 2017Q2

REPORT INFORMATION
  Report Type: Report from Study
  Country: AT (occurrence: AT)
  Receive Date: 20170508
  Receipt Date: 20170517
  Transmission Date: 20170912
  Serious: Yes (Death, Life-Threatening, Hospitalization, Other)
  Sender: FDA-Public Use
  Company Number: AT-JNJFOC-20170504090

PATIENT
  Age: 65 Year
  Sex: Female
  Weight: 67 kg

DRUGS (1)
  1. RIVAROXABAN [Suspect]
     Active Substance: RIVAROXABAN
     Indication: EMBOLIC STROKE
     Route: 048
     Dates: start: 20160622, end: 20160806

REACTIONS (2)
  - Pneumonia aspiration [Recovered/Resolved]
  - Epilepsy [Fatal]

NARRATIVE: CASE EVENT DATE: 20160806
